FAERS Safety Report 4338635-7 (Version None)
Quarter: 2004Q2

REPORT INFORMATION
  Report Type: 
  Country: None (occurrence: None)
  Receive Date: 20040414
  Receipt Date: 20040324
  Transmission Date: 20050107
  Serious: Yes (Life-Threatening, Hospitalization, Other)
  Sender: FDA-Public Use
  Company Number: US-BRISTOL-MYERS SQUIBB COMPANY-12541231

PATIENT
  Age: 76 Year
  Sex: Female
  Weight: 80 kg

DRUGS (14)
  1. ERBITUX [Suspect]
     Indication: COLON CANCER
     Dosage: STOPPED AFTER 23 CC
     Route: 042
     Dates: start: 20040324, end: 20040324
  2. BENADRYL [Concomitant]
     Indication: PREMEDICATION
     Route: 042
     Dates: start: 20040324, end: 20040324
  3. TOPROL-XL [Concomitant]
  4. BETAPACE [Concomitant]
  5. LASIX [Concomitant]
  6. COUMADIN [Concomitant]
  7. MAGNESIUM [Concomitant]
  8. PEPCID [Concomitant]
  9. M.V.I. [Concomitant]
  10. OS-CAL + D [Concomitant]
  11. PREVACID [Concomitant]
  12. OXYCONTIN [Concomitant]
  13. OXYCODONE [Concomitant]
  14. DARVOCET-N 100 [Concomitant]

REACTIONS (2)
  - ABDOMINAL PAIN UPPER [None]
  - RESPIRATORY ARREST [None]
